FAERS Safety Report 6486421-4 (Version None)
Quarter: 2009Q4

REPORT INFORMATION
  Report Type: 
  Country: None (occurrence: None)
  Receive Date: 20091210
  Receipt Date: 20091203
  Transmission Date: 20100525
  Serious: Yes (Hospitalization)
  Sender: FDA-Public Use
  Company Number: US-BIOGENIDEC-2009BI036791

PATIENT
  Age: 58 Year
  Sex: Female

DRUGS (4)
  1. AVONEX [Suspect]
     Indication: MULTIPLE SCLEROSIS
     Route: 030
     Dates: start: 20070314
  2. AVONEX [Suspect]
     Route: 030
     Dates: start: 20070314
  3. AVONEX [Suspect]
     Route: 030
     Dates: start: 20070314
  4. AVONEX [Suspect]
     Route: 030
     Dates: start: 20070314

REACTIONS (1)
  - DECUBITUS ULCER [None]
